FAERS Safety Report 7881584 (Version 2)
Quarter: 2012Q4

REPORT INFORMATION
  Report Type: 
  Country: FR (occurrence: FR)
  Receive Date: 20110401
  Receipt Date: 20120918
  Transmission Date: 20130627
  Serious: Yes (Other)
  Sender: FDA-Public Use
  Company Number: FR-PFIZER INC-2011071797

PATIENT
  Age: 24 Month
  Sex: Female
  Weight: 14 kg

DRUGS (16)
  1. ATARAX [Suspect]
     Dosage: 14 mg, 2x/day
     Route: 048
     Dates: start: 20110304, end: 20110304
  2. ATARAX [Suspect]
     Dosage: 14 mg, 1x/day
     Route: 048
     Dates: start: 20110306, end: 20110307
  3. NALBUPHINE HYDROCHLORIDE [Suspect]
     Dosage: 4.2 mg, 3x/day
     Dates: start: 20110304, end: 20110304
  4. NALBUPHINE HYDROCHLORIDE [Suspect]
     Dosage: 4.2 mg, 1x/day
     Dates: start: 20110305, end: 20110305
  5. SUFENTA [Suspect]
     Dosage: UNK
     Dates: start: 20110305, end: 20110305
  6. AUGMENTIN [Concomitant]
     Dosage: UNK
     Dates: start: 20110303, end: 20110303
  7. ROCEPHINE [Concomitant]
     Dosage: 1 g, 1x/day
     Dates: start: 20110303
  8. DALACINE [Concomitant]
     Dosage: 150 mg, 3x/day
     Dates: start: 20110303
  9. FLAGYL [Concomitant]
     Dosage: 210 mg, 2x/day
     Dates: start: 20110303, end: 201103
  10. FLAGYL [Concomitant]
     Dosage: 150 mg, 2x/day
     Dates: start: 20110308
  11. BERINERT HS [Concomitant]
     Dosage: 500 IU, 2x/day
     Dates: start: 20110303, end: 20110303
  12. BERINERT HS [Concomitant]
     Dosage: 500 IU, 1x/day
     Dates: start: 20110305
  13. CODENFAN [Concomitant]
     Dosage: 7 mg, UNK
     Dates: start: 20110303
  14. CODENFAN [Concomitant]
     Dosage: 14 mg, 4x/day
     Dates: start: 201103
  15. EXACYL [Concomitant]
     Dosage: 180 mg, 3x/day
     Dates: start: 20110304
  16. PROPOFOL [Concomitant]
     Dosage: UNK

REACTIONS (3)
  - Confusional state [Recovered/Resolved]
  - Hallucination, visual [Recovered/Resolved]
  - Vitreous floaters [Recovered/Resolved]
